FAERS Safety Report 25216470 (Version 1)
Quarter: 2025Q2

REPORT INFORMATION
  Report Type: Spontaneous
  Country: US (occurrence: US)
  Receive Date: 20250418
  Receipt Date: 20250418
  Transmission Date: 20250716
  Serious: No
  Sender: SANOFI AVENTIS
  Company Number: US-SA-2025SA112956

PATIENT
  Age: 11 Year
  Sex: Female

DRUGS (4)
  1. DUPIXENT [Suspect]
     Active Substance: DUPILUMAB
     Indication: Dermatitis atopic
     Dosage: 200 MG, QOW
     Route: 058
     Dates: start: 202412
  2. PIMECROLIMUS [Concomitant]
     Active Substance: PIMECROLIMUS
  3. RIZATRIPTAN [Concomitant]
     Active Substance: RIZATRIPTAN
  4. ONDANSETRON [Concomitant]
     Active Substance: ONDANSETRON

REACTIONS (2)
  - Oropharyngeal pain [Unknown]
  - Pharyngitis [Unknown]

NARRATIVE: CASE EVENT DATE: 20241201
